FAERS Safety Report 11321092 (Version 1)
Quarter: 2015Q3

REPORT INFORMATION
  Report Type: Spontaneous
  Country: US (occurrence: US)
  Receive Date: 20150729
  Receipt Date: 20150729
  Transmission Date: 20151125
  Serious: No
  Sender: FDA-Public Use
  Company Number: US-BAYER-2015-388823

PATIENT
  Age: 60 Year
  Sex: Male

DRUGS (1)
  1. GADAVIST [Suspect]
     Active Substance: GADOBUTROL
     Dosage: 9 ML, ONCE
     Route: 042

REACTIONS (5)
  - Heart rate decreased [None]
  - Blood pressure decreased [None]
  - Throat tightness [None]
  - Vomiting [None]
  - Pharyngeal oedema [None]
